FAERS Safety Report 7543742-1 (Version None)
Quarter: 2011Q2

REPORT INFORMATION
  Report Type: 
  Country: None (occurrence: None)
  Receive Date: 20110613
  Receipt Date: 20040803
  Transmission Date: 20111010
  Serious: Yes (Other)
  Sender: FDA-Public Use
  Company Number: PHHO2004JP11116

PATIENT
  Sex: Female

DRUGS (3)
  1. DIOVAN [Suspect]
     Indication: HYPERTENSION
     Dosage: 40 MG
     Dates: start: 20031106, end: 20031204
  2. ALINAMIN F [Concomitant]
     Indication: HYPOAESTHESIA
     Dates: start: 20031106, end: 20031204
  3. BASEN [Concomitant]
     Indication: DIABETES MELLITUS
     Dates: start: 20031106, end: 20031204

REACTIONS (2)
  - SPINAL OSTEOARTHRITIS [None]
  - CONCOMITANT DISEASE PROGRESSION [None]
